FAERS Safety Report 4683137-1 (Version None)
Quarter: 2005Q2

REPORT INFORMATION
  Report Type: 
  Country: None (occurrence: None)
  Receive Date: 20050602
  Receipt Date: 20050330
  Transmission Date: 20051028
  Serious: No
  Sender: FDA-Public Use
  Company Number: USA050394555

PATIENT
  Age: 49 Year
  Sex: Female
  Weight: 93 kg

DRUGS (4)
  1. CYMBALTA [Suspect]
     Indication: PAIN
     Dosage: 60 MG
     Dates: start: 20050314
  2. NAPROXEN SODIUM [Concomitant]
  3. SOMA [Concomitant]
  4. NORFLEX [Concomitant]

REACTIONS (4)
  - FEELING ABNORMAL [None]
  - HEADACHE [None]
  - IRRITABILITY [None]
  - THINKING ABNORMAL [None]
